FAERS Safety Report 17622032 (Version 2)
Quarter: 2020Q2

REPORT INFORMATION
  Report Type: Report from Study
  Country: BE (occurrence: BE)
  Receive Date: 20200403
  Receipt Date: 20200410
  Transmission Date: 20200713
  Serious: Yes (Hospitalization)
  Sender: FDA-Public Use
  Company Number: BE-PFIZER INC-2020137178

PATIENT
  Age: 17 Year
  Sex: Male
  Weight: 73.15 kg

DRUGS (7)
  1. OMEPRAZOLE. [Concomitant]
     Active Substance: OMEPRAZOLE
     Dosage: UNK
     Dates: start: 20200205
  2. MATRIFEN [Suspect]
     Active Substance: FENTANYL
     Dosage: UNK
     Dates: start: 20190110
  3. MEDROL [Suspect]
     Active Substance: METHYLPREDNISOLONE
     Indication: NEURALGIA
     Dosage: 4 MG, 1X/DAY
     Dates: start: 20200121
  4. MEDROL [Suspect]
     Active Substance: METHYLPREDNISOLONE
     Dosage: 2 MG, 1X/DAY
     Dates: end: 20200208
  5. PONATINIB [Suspect]
     Active Substance: PONATINIB
     Indication: SARCOMA
     Dosage: 10 MG, 2X/DAY
     Route: 048
     Dates: start: 20200129, end: 20200210
  6. LYRICA [Concomitant]
     Active Substance: PREGABALIN
  7. KYTRIL [Concomitant]
     Active Substance: GRANISETRON HYDROCHLORIDE
     Dosage: UNK
     Dates: start: 20200206

REACTIONS (1)
  - Constipation [Not Recovered/Not Resolved]
